FAERS Safety Report 25388651 (Version 1)
Quarter: 2025Q2

REPORT INFORMATION
  Report Type: Spontaneous
  Country: DE (occurrence: DE)
  Receive Date: 20250603
  Receipt Date: 20250603
  Transmission Date: 20250716
  Serious: Yes (Other)
  Sender: CELLTRION
  Company Number: DE-ROCHE-10000148362

PATIENT

DRUGS (1)
  1. RITUXIMAB [Suspect]
     Active Substance: RITUXIMAB
     Indication: Pemphigoid
     Route: 065

REACTIONS (3)
  - Cytopenia [Recovered/Resolved]
  - Hypogammaglobulinaemia [Unknown]
  - Intentional product use issue [Unknown]
